FAERS Safety Report 5412785-6 (Version None)
Quarter: 2007Q3

REPORT INFORMATION
  Report Type: 
  Country: None (occurrence: None)
  Receive Date: 20070813
  Receipt Date: 20070730
  Transmission Date: 20080115
  Serious: Yes (Hospitalization, Other)
  Sender: FDA-Public Use
  Company Number: DE-ELI_LILLY_AND_COMPANY-DE200707007062

PATIENT
  Age: 57 Year
  Sex: Female

DRUGS (10)
  1. CYMBALTA [Suspect]
  2. BUSCOPAN [Concomitant]
  3. ALCOHOL [Concomitant]
  4. DICLO [Concomitant]
  5. DOCITON [Concomitant]
  6. PARACETAMOL [Concomitant]
  7. PROMETHAZINE [Concomitant]
  8. TIMONIL [Concomitant]
  9. TRIMIPRAMINE MALEATE [Concomitant]
  10. ZOP [Concomitant]
     Dosage: 7.5 UNK, UNK

REACTIONS (3)
  - ASPIRATION [None]
  - COMA [None]
  - SUICIDE ATTEMPT [None]
